FAERS Safety Report 23913456 (Version 1)
Quarter: 2024Q2

REPORT INFORMATION
  Report Type: Spontaneous
  Country: BD (occurrence: BD)
  Receive Date: 20240529
  Receipt Date: 20240529
  Transmission Date: 20240716
  Serious: Yes (Other)
  Sender: FDA-Public Use
  Company Number: BD-ROCHE-3563382

PATIENT
  Age: 39 Year
  Sex: Female
  Weight: 71 kg

DRUGS (10)
  1. CAPECITABINE [Suspect]
     Active Substance: CAPECITABINE
     Indication: HER2 positive breast cancer
  2. PERJETA [Suspect]
     Active Substance: PERTUZUMAB
     Indication: HER2 positive breast cancer
     Dates: start: 20231105, end: 20240417
  3. PERJETA [Suspect]
     Active Substance: PERTUZUMAB
     Indication: HER2 positive breast cancer
  4. PERJETA [Suspect]
     Active Substance: PERTUZUMAB
     Indication: HER2 positive breast cancer
  5. HERCEPTIN [Suspect]
     Active Substance: TRASTUZUMAB
     Indication: HER2 positive breast cancer
     Dates: start: 20231105, end: 20240417
  6. PACLITAXEL [Concomitant]
     Active Substance: PACLITAXEL
  7. CARBOPLATIN [Concomitant]
     Active Substance: CARBOPLATIN
  8. URSOCOL [Concomitant]
  9. PEGFILGRASTIM [Concomitant]
     Active Substance: PEGFILGRASTIM
  10. NAURIF [Concomitant]

REACTIONS (1)
  - Metastases to central nervous system [Unknown]

NARRATIVE: CASE EVENT DATE: 20240219
